FAERS Safety Report 7733792-4 (Version None)
Quarter: 2011Q3

REPORT INFORMATION
  Report Type: 
  Country: None (occurrence: None)
  Receive Date: 20110902
  Receipt Date: 20110902
  Transmission Date: 20111222
  Serious: No
  Sender: FDA-Public Use
  Company Number: None

PATIENT
  Sex: Female
  Weight: 50.8029 kg

DRUGS (2)
  1. METRONIDAZOLE [Suspect]
     Dosage: 1 TABLET EVERY 8 HOURS
     Dates: start: 20110525, end: 20110529
  2. CIPROFLOXACIN [Suspect]
     Dosage: 1 TABLET EVERY 12 HOURS
     Dates: start: 20110525, end: 20110529

REACTIONS (9)
  - AGEUSIA [None]
  - ABDOMINAL PAIN UPPER [None]
  - CONTUSION [None]
  - LIP PAIN [None]
  - DECREASED APPETITE [None]
  - OROPHARYNGEAL PAIN [None]
  - SKIN EXFOLIATION [None]
  - DIARRHOEA [None]
  - NAUSEA [None]
